FAERS Safety Report 12769448 (Version 1)
Quarter: 2016Q3

REPORT INFORMATION
  Report Type: Report from Study
  Country: CA (occurrence: CA)
  Receive Date: 20160921
  Receipt Date: 20160921
  Transmission Date: 20161109
  Serious: Yes (Other)
  Sender: FDA-Public Use
  Company Number: CA-AMGEN-CANSL2016127078

PATIENT
  Age: 67 Year
  Sex: Male

DRUGS (3)
  1. RITUXAN [Concomitant]
     Active Substance: RITUXIMAB
     Dosage: UNK
     Dates: start: 2014
  2. ENBREL [Suspect]
     Active Substance: ETANERCEPT
     Indication: RHEUMATOID ARTHRITIS
     Dosage: 50 MG, UNK
     Route: 065
     Dates: start: 20070627, end: 2014
  3. MTX [Concomitant]
     Active Substance: METHOTREXATE SODIUM
     Dosage: 1 PILL, QWK

REACTIONS (2)
  - Pulmonary fibrosis [Unknown]
  - Pleural effusion [Unknown]
